FAERS Safety Report 6689808-X (Version None)
Quarter: 2010Q2

REPORT INFORMATION
  Report Type: 
  Country: None (occurrence: None)
  Receive Date: 20100412
  Receipt Date: 20100203
  Transmission Date: 20101027
  Serious: No
  Sender: FDA-Public Use
  Company Number: 1000011638

PATIENT
  Age: 74 Year
  Sex: Male

DRUGS (3)
  1. BYSTOLIC [Suspect]
     Indication: HYPERTENSION
     Dosage: ORAL
     Route: 048
     Dates: start: 20100129
  2. PLAVIX [Concomitant]
  3. INSULIN [Concomitant]

REACTIONS (1)
  - ABDOMINAL PAIN [None]
